FAERS Safety Report 25937492 (Version 1)
Quarter: 2025Q4

REPORT INFORMATION
  Report Type: Spontaneous
  Country: US (occurrence: US)
  Receive Date: 20251018
  Receipt Date: 20251018
  Transmission Date: 20260117
  Serious: No
  Sender: SANOFI AVENTIS
  Company Number: US-SANOFI-02688575

PATIENT

DRUGS (1)
  1. CAMPATH [Suspect]
     Active Substance: ALEMTUZUMAB
     Dosage: UNK
     Route: 058

REACTIONS (1)
  - Off label use [Unknown]
